FAERS Safety Report 4378548-8 (Version None)
Quarter: 2004Q2

REPORT INFORMATION
  Report Type: 
  Country: None (occurrence: None)
  Receive Date: 20040616
  Receipt Date: 20040603
  Transmission Date: 20050107
  Serious: Yes (Hospitalization)
  Sender: FDA-Public Use
  Company Number: FR-GLAXOSMITHKLINE-B0334616A

PATIENT
  Age: 39 Year
  Sex: Female

DRUGS (4)
  1. DEROXAT [Suspect]
     Route: 048
     Dates: start: 20040223
  2. TRINORDIOL [Suspect]
     Route: 048
     Dates: start: 20040110, end: 20040120
  3. MOPRAL [Suspect]
     Route: 048
     Dates: start: 20020211
  4. TRILEPTAL [Suspect]
     Route: 048
     Dates: start: 20040226, end: 20040228

REACTIONS (10)
  - ABDOMINAL PAIN [None]
  - ALANINE AMINOTRANSFERASE INCREASED [None]
  - ANTINUCLEAR ANTIBODY POSITIVE [None]
  - ASCITES [None]
  - ASPARTATE AMINOTRANSFERASE INCREASED [None]
  - CHOLESTASIS [None]
  - HEPATIC STEATOSIS [None]
  - HEPATOMEGALY [None]
  - HYPOTENSION [None]
  - TRANSAMINASES INCREASED [None]
